FAERS Safety Report 12805442 (Version 1)
Quarter: 2016Q4

REPORT INFORMATION
  Report Type: Spontaneous
  Country: US (occurrence: US)
  Receive Date: 20161004
  Receipt Date: 20161004
  Transmission Date: 20170207
  Serious: Yes (Other)
  Sender: FDA-Public Use
  Company Number: US-AMGEN-USASP2016132396

PATIENT
  Age: 39 Year
  Sex: Female
  Weight: 69.39 kg

DRUGS (1)
  1. ENBREL [Suspect]
     Active Substance: ETANERCEPT
     Indication: RHEUMATOID ARTHRITIS
     Dosage: 50 MG, QWK
     Route: 058

REACTIONS (5)
  - Restless legs syndrome [Unknown]
  - Muscle twitching [Unknown]
  - Muscle strain [Unknown]
  - Rheumatoid arthritis [Unknown]
  - Tremor [Unknown]

NARRATIVE: CASE EVENT DATE: 201607
